FAERS Safety Report 20547045 (Version 1)
Quarter: 2022Q1

REPORT INFORMATION
  Report Type: Spontaneous
  Country: US (occurrence: None)
  Receive Date: 20220303
  Receipt Date: 20220303
  Transmission Date: 20220423
  Serious: No
  Sender: FDA-Public Use
  Company Number: None

PATIENT
  Sex: Male

DRUGS (2)
  1. ABIRATERONE [Suspect]
     Active Substance: ABIRATERONE
  2. ORGOVYX [Concomitant]
     Active Substance: RELUGOLIX

REACTIONS (2)
  - Anaphylactic reaction [None]
  - Pharyngeal swelling [None]
